FAERS Safety Report 9085172 (Version 1)
Quarter: 2013Q1

REPORT INFORMATION
  Report Type: Report from Study
  Country: US (occurrence: US)
  Receive Date: 20130131
  Receipt Date: 20130131
  Transmission Date: 20140127
  Serious: No
  Sender: FDA-Public Use
  Company Number: US-ABBOTT-12P-163-0986274-00

PATIENT
  Age: 12 Year
  Sex: Female
  Weight: 40.41 kg

DRUGS (2)
  1. HUMIRA [Suspect]
     Indication: JUVENILE IDIOPATHIC ARTHRITIS
     Route: 058
     Dates: start: 20120515
  2. METHOTREXATE (NON-ABBOTT) [Concomitant]
     Indication: JUVENILE IDIOPATHIC ARTHRITIS

REACTIONS (1)
  - Fatigue [Recovering/Resolving]
